FAERS Safety Report 8561903-X (Version None)
Quarter: 2012Q3

REPORT INFORMATION
  Report Type: 
  Country: None (occurrence: None)
  Receive Date: 20120802
  Receipt Date: 20120629
  Transmission Date: 20120928
  Serious: No
  Sender: FDA-Public Use
  Company Number: US-ASTRAZENECA-2012SE42153

PATIENT
  Age: 53 Year
  Sex: Female
  Weight: 74.8 kg

DRUGS (3)
  1. RHINOCORT [Suspect]
     Route: 045
  2. RHINOCORT [Suspect]
     Indication: RHINITIS ALLERGIC
     Dosage: 64 MCG 1 SPRAY DAILY
     Route: 045
  3. TEGRETOL [Concomitant]
     Indication: CONVULSION

REACTIONS (15)
  - DIZZINESS [None]
  - SINUS HEADACHE [None]
  - EPISTAXIS [None]
  - SINUSITIS [None]
  - DYSPNOEA [None]
  - HEADACHE [None]
  - INTENTIONAL DRUG MISUSE [None]
  - ADVERSE EVENT [None]
  - EYE PAIN [None]
  - FACIAL PAIN [None]
  - RHINALGIA [None]
  - NASAL CONGESTION [None]
  - MEDICATION ERROR [None]
  - CIRCUMSTANCE OR INFORMATION CAPABLE OF LEADING TO MEDICATION ERROR [None]
  - DRY MOUTH [None]
